FAERS Safety Report 25943895 (Version 1)
Quarter: 2025Q4

REPORT INFORMATION
  Report Type: Spontaneous
  Country: US (occurrence: US)
  Receive Date: 20251021
  Receipt Date: 20251021
  Transmission Date: 20260118
  Serious: No
  Sender: KARYOPHARM THERAPEUTICS
  Company Number: US-KARYOPHARM-2025KPT100832

PATIENT

DRUGS (8)
  1. SELINEXOR [Suspect]
     Active Substance: SELINEXOR
     Indication: Plasma cell myeloma
     Dosage: 40 MG WEEKLY
     Route: 048
  2. ATORVASTATIN [Concomitant]
     Active Substance: ATORVASTATIN
  3. CANDESARTAN [Concomitant]
     Active Substance: CANDESARTAN
  4. DEXAMETHASONE [Concomitant]
     Active Substance: DEXAMETHASONE
  5. ACETAMINOPHEN\HYDROCODONE [Concomitant]
     Active Substance: ACETAMINOPHEN\HYDROCODONE
  6. ONDANSETRON [Concomitant]
     Active Substance: ONDANSETRON
  7. POMALYST [Concomitant]
     Active Substance: POMALIDOMIDE
  8. VALACYCLOVIR [Concomitant]
     Active Substance: VALACYCLOVIR HYDROCHLORIDE

REACTIONS (4)
  - Tremor [Unknown]
  - White blood cell count decreased [Unknown]
  - Asthenia [Unknown]
  - Weight decreased [Unknown]
